FAERS Safety Report 9750074 (Version 1)
Quarter: 2013Q4

REPORT INFORMATION
  Report Type: Spontaneous
  Country: GR (occurrence: GR)
  Receive Date: 20131212
  Receipt Date: 20131212
  Transmission Date: 20140711
  Serious: No
  Sender: FDA-Public Use
  Company Number: GR-GILEAD-GR-CVT-090774

PATIENT
  Age: 83 Year
  Sex: Male

DRUGS (4)
  1. RANEXA [Suspect]
     Indication: ANGINA PECTORIS
     Route: 048
  2. ACETYLSALICYLIC ACID [Concomitant]
  3. SIMVASTATIN [Concomitant]
  4. METOPROLOL                         /00376901/ [Concomitant]

REACTIONS (2)
  - Pyrexia [Recovered/Resolved]
  - Chills [Recovered/Resolved]
